FAERS Safety Report 4291008-8 (Version None)
Quarter: 2004Q1

REPORT INFORMATION
  Report Type: 
  Country: None (occurrence: None)
  Receive Date: 20040211
  Receipt Date: 20031027
  Transmission Date: 20041129
  Serious: No
  Sender: FDA-Public Use
  Company Number: US-GLAXOSMITHKLINE-A0431779A

PATIENT
  Age: 26 Year
  Sex: Male

DRUGS (3)
  1. PAXIL [Suspect]
     Dosage: 1TAB PER DAY
     Route: 048
     Dates: start: 20031024
  2. HYZAAR [Concomitant]
  3. INDERAL [Concomitant]

REACTIONS (2)
  - DIARRHOEA [None]
  - HEADACHE [None]
